FAERS Safety Report 6853512-5 (Version None)
Quarter: 2010Q3

REPORT INFORMATION
  Report Type: 
  Country: None (occurrence: None)
  Receive Date: 20100717
  Receipt Date: 20080128
  Transmission Date: 20110219
  Serious: No
  Sender: FDA-Public Use
  Company Number: US-PFIZER INC-2007103373

PATIENT
  Sex: Female
  Weight: 46.4 kg

DRUGS (9)
  1. CHANTIX [Suspect]
     Indication: SMOKING CESSATION THERAPY
     Route: 048
     Dates: start: 20070928
  2. METHADONE HCL [Concomitant]
  3. FENTANYL [Concomitant]
  4. PAROXETINE [Concomitant]
  5. METOCLOPRAMIDE [Concomitant]
  6. MONTELUKAST SODIUM [Concomitant]
  7. COMBIVENT [Concomitant]
     Route: 055
  8. OGEN [Concomitant]
  9. XANAX [Concomitant]

REACTIONS (1)
  - DRUG INEFFECTIVE [None]
